FAERS Safety Report 6156278-X (Version None)
Quarter: 2009Q2

REPORT INFORMATION
  Report Type: 
  Country: None (occurrence: None)
  Receive Date: 20090415
  Receipt Date: 20090411
  Transmission Date: 20091009
  Serious: Yes (Life-Threatening, Hospitalization, Disabling)
  Sender: FDA-Public Use
  Company Number: SA-SANOFI-SYNTHELABO-F01200900355

PATIENT
  Sex: Female
  Weight: 59.5 kg

DRUGS (5)
  1. LEUCOVORIN CALCIUM [Suspect]
     Route: 041
     Dates: start: 20070709, end: 20070710
  2. FLUOROURACIL [Suspect]
     Dosage: BOLUS
     Route: 040
     Dates: start: 20070709, end: 20070709
  3. FLUOROURACIL [Suspect]
     Route: 041
     Dates: start: 20070709, end: 20070710
  4. OXALIPLATIN [Suspect]
     Indication: COLON CANCER
     Route: 041
     Dates: start: 20070709, end: 20070709
  5. REGULAR INSULIN [Concomitant]
     Route: 058

REACTIONS (1)
  - CEREBROVASCULAR ACCIDENT [None]
